FAERS Safety Report 16128338 (Version 1)
Quarter: 2019Q1

REPORT INFORMATION
  Report Type: Other
  Country: CA (occurrence: CA)
  Receive Date: 20190328
  Receipt Date: 20190328
  Transmission Date: 20190418
  Serious: Yes (Other)
  Sender: FDA-Public Use
  Company Number: CA-LANTHEUS-LMI-2019-00206

PATIENT
  Age: 47 Year
  Sex: Female

DRUGS (4)
  1. CARDIOLITE [Suspect]
     Active Substance: TECHNETIUM TC-99M SESTAMIBI
     Dosage: 300 MBQ, SINGLE
     Route: 051
  2. FENTANYL. [Suspect]
     Active Substance: FENTANYL
     Indication: PRODUCT USED FOR UNKNOWN INDICATION
     Route: 062
  3. OXYCODONE TEREPHTHALATE [Suspect]
     Active Substance: OXYCODONE TEREPHTHALATE
     Indication: PRODUCT USED FOR UNKNOWN INDICATION
     Route: 048
  4. ACETAMINOPHEN W/OXYCODONE HYDROCHLORIDE [Suspect]
     Active Substance: ACETAMINOPHEN\OXYCODONE HYDROCHLORIDE
     Indication: PRODUCT USED FOR UNKNOWN INDICATION
     Route: 048

REACTIONS (3)
  - Malaise [Recovered/Resolved]
  - Somnolence [Recovered/Resolved]
  - Oxygen saturation decreased [Recovered/Resolved]
